FAERS Safety Report 8926930 (Version 1)
Quarter: 2012Q4

REPORT INFORMATION
  Report Type: Report from Study
  Country: US (occurrence: US)
  Receive Date: 20121127
  Receipt Date: 20121127
  Transmission Date: 20130627
  Serious: Yes (Hospitalization)
  Sender: FDA-Public Use
  Company Number: US-PFIZER INC-2012292466

PATIENT
  Age: 74 Year
  Sex: Female
  Weight: 63 kg

DRUGS (6)
  1. CARBOPLATIN [Suspect]
     Dosage: 474 mg, UNK
     Route: 042
     Dates: start: 20080619
  2. PACLITAXEL [Suspect]
     Indication: NON-SMALL CELL LUNG CANCER
     Dosage: 328 mg, UNK
     Route: 042
     Dates: start: 20080619
  3. NORVASC [Suspect]
     Indication: HYPERTENSION
     Dosage: 10 mg, UNK
  4. NORVASC [Suspect]
     Dosage: 5 mg, UNK
  5. BEVACIZUMAB [Suspect]
     Indication: NON-SMALL CELL LUNG CANCER
     Dosage: 907.5 mg, UNK
     Route: 042
     Dates: start: 20080619
  6. HYZAAR [Suspect]
     Indication: HYPERTENSION

REACTIONS (1)
  - Hypertension [Recovered/Resolved]
